FAERS Safety Report 7963856-1 (Version None)
Quarter: 2011Q4

REPORT INFORMATION
  Report Type: 
  Country: None (occurrence: None)
  Receive Date: 20111208
  Receipt Date: 20111129
  Transmission Date: 20120403
  Serious: Yes (Hospitalization)
  Sender: FDA-Public Use
  Company Number: DK-JNJFOC-20111107218

PATIENT
  Sex: Male
  Weight: 88 kg

DRUGS (1)
  1. HALOPERIDOL [Suspect]
     Indication: PRODUCT USED FOR UNKNOWN INDICATION
     Route: 065
     Dates: start: 20091005, end: 20091007

REACTIONS (2)
  - ARRHYTHMIA [None]
  - PSYCHOTIC DISORDER [None]
